FAERS Safety Report 8133041-1 (Version None)
Quarter: 2012Q1

REPORT INFORMATION
  Report Type: 
  Country: None (occurrence: None)
  Receive Date: 20120213
  Receipt Date: 20120206
  Transmission Date: 20120608
  Serious: Yes (Other)
  Sender: FDA-Public Use
  Company Number: PHEH2012US003146

PATIENT
  Sex: Female

DRUGS (10)
  1. METFORMIN HCL [Concomitant]
     Dosage: 750 MG, BID
  2. ASPIRIN [Concomitant]
     Dosage: 81 MG, UNK
  3. VITAMIN B-12 [Concomitant]
     Dosage: 1000 MG, UNK
  4. BENICAR [Concomitant]
     Dosage: 40 MG, UNK
  5. NOVOLIN 70/30 [Concomitant]
     Dosage: 31UNITS IN THE AM AND 30 IN PM
  6. EXELON [Suspect]
     Route: 062
  7. ARICEPT [Suspect]
     Dosage: 5 MG DAILY
  8. PLAVIX [Concomitant]
     Dosage: 75 MG, UNK
  9. METOCLOPRAMIDE [Concomitant]
     Dosage: 50 MG, BID
  10. LIPITOR [Concomitant]
     Dosage: 20 MG, UNK

REACTIONS (8)
  - CONFUSIONAL STATE [None]
  - COLD SWEAT [None]
  - GAIT DISTURBANCE [None]
  - MEMORY IMPAIRMENT [None]
  - BLOOD GLUCOSE INCREASED [None]
  - URINARY INCONTINENCE [None]
  - DYSSTASIA [None]
  - RETCHING [None]
